FAERS Safety Report 15221314 (Version 2)
Quarter: 2018Q4

REPORT INFORMATION
  Report Type: Spontaneous
  Country: US (occurrence: US)
  Receive Date: 20180731
  Receipt Date: 20181107
  Transmission Date: 20190204
  Serious: Yes (Hospitalization)
  Sender: FDA-Public Use
  Company Number: US-PFIZER INC-2018304042

PATIENT
  Age: 69 Year
  Sex: Female
  Weight: 82.86 kg

DRUGS (1)
  1. XELJANZ XR [Suspect]
     Active Substance: TOFACITINIB CITRATE
     Indication: RHEUMATOID ARTHRITIS
     Dosage: 11 MG, DAILY
     Route: 048
     Dates: start: 2017

REACTIONS (2)
  - Fall [Unknown]
  - Joint dislocation [Unknown]

NARRATIVE: CASE EVENT DATE: 201805
